FAERS Safety Report 16898542 (Version 5)
Quarter: 2020Q1

REPORT INFORMATION
  Report Type: Report from Study
  Country: US (occurrence: US)
  Receive Date: 20191009
  Receipt Date: 20200109
  Transmission Date: 20200409
  Serious: Yes (Hospitalization)
  Sender: FDA-Public Use
  Company Number: US-ROCHE-2422519

PATIENT
  Age: 61 Year
  Sex: Female
  Weight: 80.4 kg

DRUGS (13)
  1. CYCLOPHOSPHAMIDE. [Suspect]
     Active Substance: CYCLOPHOSPHAMIDE
     Indication: RICHTER^S SYNDROME
     Dosage: BOLUS GIVEN OVER 15 MIN
     Route: 042
     Dates: start: 20191203, end: 20191207
  2. PREDNISOLONE. [Suspect]
     Active Substance: PREDNISOLONE
     Indication: RICHTER^S SYNDROME
     Route: 048
     Dates: start: 20190913, end: 20190917
  3. RITUXIMAB. [Suspect]
     Active Substance: RITUXIMAB
     Route: 041
     Dates: start: 20191203, end: 20191207
  4. CYCLOPHOSPHAMIDE. [Suspect]
     Active Substance: CYCLOPHOSPHAMIDE
     Route: 042
     Dates: start: 20190312, end: 20190712
  5. VENETOCLAX. [Suspect]
     Active Substance: VENETOCLAX
     Indication: RICHTER^S SYNDROME
     Route: 048
     Dates: start: 20191203, end: 20191212
  6. ETOPOSIDE. [Suspect]
     Active Substance: ETOPOSIDE
     Indication: RICHTER^S SYNDROME
     Dosage: CONTINUOUS INFUSION OVER  24 HOURS DAY 1 TO DAY 4
     Route: 042
     Dates: start: 20190913, end: 20190916
  7. DOXORUBICIN [Suspect]
     Active Substance: DOXORUBICIN
     Indication: RICHTER^S SYNDROME
     Dosage: CONTINUOUS INFUSION OVER  24 HOURS DAY 1 TO DAY 4
     Route: 042
     Dates: start: 20191203, end: 20191207
  8. PREDNISOLONE. [Suspect]
     Active Substance: PREDNISOLONE
     Route: 048
     Dates: start: 20191203, end: 20191207
  9. ETOPOSIDE. [Suspect]
     Active Substance: ETOPOSIDE
     Route: 042
     Dates: start: 20191203, end: 20191207
  10. VINCRISTINE [Suspect]
     Active Substance: VINCRISTINE
     Indication: RICHTER^S SYNDROME
     Dosage: IV CONTINUOUS INFUSION OVER 24 HRS DAY 1 TO 4
     Route: 042
     Dates: start: 20190913, end: 20190916
  11. RITUXIMAB. [Suspect]
     Active Substance: RITUXIMAB
     Indication: RICHTER^S SYNDROME
     Dosage: DAY 1 OF THE CYCLE.
     Route: 041
     Dates: start: 20190920
  12. DOXORUBICIN [Suspect]
     Active Substance: DOXORUBICIN
     Route: 042
     Dates: start: 20190312, end: 20190712
  13. VINCRISTINE [Suspect]
     Active Substance: VINCRISTINE
     Route: 042
     Dates: start: 20191203, end: 20191207

REACTIONS (2)
  - Enterocolitis bacterial [Recovered/Resolved]
  - Haemorrhoids [Recovered/Resolved]

NARRATIVE: CASE EVENT DATE: 20190923
